FAERS Safety Report 9306381 (Version 1)
Quarter: 2013Q2

REPORT INFORMATION
  Report Type: Report from Study
  Country: BR (occurrence: BR)
  Receive Date: 20130523
  Receipt Date: 20130523
  Transmission Date: 20140414
  Serious: Yes (Other)
  Sender: FDA-Public Use
  Company Number: PHHY2013BR051774

PATIENT
  Sex: Female

DRUGS (2)
  1. DIOVAN TRIPLE [Suspect]
     Indication: HYPERTENSION
     Dosage: 2 DF, (160/25/10 MG) DAILY, IN THE MORNING
     Route: 048
     Dates: start: 2012
  2. LOTAR [Suspect]
     Indication: HYPERTENSION
     Dosage: 1 DF, Q12H
     Route: 048

REACTIONS (7)
  - Dementia Alzheimer^s type [Not Recovered/Not Resolved]
  - Parkinson^s disease [Not Recovered/Not Resolved]
  - Wound [Recovering/Resolving]
  - Feeling hot [Recovered/Resolved]
  - Agitation [Recovered/Resolved]
  - Sleep disorder [Recovered/Resolved]
  - Local swelling [Recovered/Resolved]
